FAERS Safety Report 18740144 (Version 1)
Quarter: 2021Q1

REPORT INFORMATION
  Report Type: Report from Study
  Country: US (occurrence: US)
  Receive Date: 20210114
  Receipt Date: 20210114
  Transmission Date: 20210419
  Serious: Yes (Hospitalization, Other)
  Sender: FDA-Public Use
  Company Number: US-TAKEDA-US201940199

PATIENT
  Sex: Female

DRUGS (8)
  1. TEDUGLUTIDE [Suspect]
     Active Substance: TEDUGLUTIDE
     Indication: SHORT-BOWEL SYNDROME
     Dosage: 2.5 MILLIGRAM, QD
     Route: 058
     Dates: start: 20180608
  2. TEDUGLUTIDE [Suspect]
     Active Substance: TEDUGLUTIDE
     Dosage: 2.54 MILLIGRAM, QD
     Route: 058
     Dates: start: 20200607, end: 202011
  3. TEDUGLUTIDE [Suspect]
     Active Substance: TEDUGLUTIDE
     Indication: SHORT-BOWEL SYNDROME
     Dosage: 2.5 MILLIGRAM, QD
     Route: 058
     Dates: start: 20180608
  4. TEDUGLUTIDE [Suspect]
     Active Substance: TEDUGLUTIDE
     Dosage: 2.54 MILLIGRAM, QD
     Route: 058
     Dates: start: 20200607, end: 202011
  5. TEDUGLUTIDE [Suspect]
     Active Substance: TEDUGLUTIDE
     Dosage: 2.54 MILLIGRAM, QD
     Route: 058
     Dates: start: 20200607, end: 202011
  6. TEDUGLUTIDE [Suspect]
     Active Substance: TEDUGLUTIDE
     Dosage: 2.54 MILLIGRAM, QD
     Route: 058
     Dates: start: 20200607, end: 202011
  7. TEDUGLUTIDE [Suspect]
     Active Substance: TEDUGLUTIDE
     Indication: SHORT-BOWEL SYNDROME
     Dosage: 2.5 MILLIGRAM, QD
     Route: 058
     Dates: start: 20180608
  8. TEDUGLUTIDE [Suspect]
     Active Substance: TEDUGLUTIDE
     Indication: SHORT-BOWEL SYNDROME
     Dosage: 2.5 MILLIGRAM, QD
     Route: 058
     Dates: start: 20180608

REACTIONS (3)
  - Drug ineffective [Unknown]
  - Renal failure [Not Recovered/Not Resolved]
  - Cardiac failure acute [Unknown]
